FAERS Safety Report 20779863 (Version 8)
Quarter: 2022Q3

REPORT INFORMATION
  Report Type: Spontaneous
  Country: US (occurrence: US)
  Receive Date: 20220503
  Receipt Date: 20220906
  Transmission Date: 20221027
  Serious: Yes (Other)
  Sender: FDA-Public Use
  Company Number: US-PFIZER INC-202200494557

PATIENT
  Age: 60 Year
  Sex: Female

DRUGS (2)
  1. IBRANCE [Suspect]
     Active Substance: PALBOCICLIB
     Dosage: 125 MG
     Dates: start: 20220325
  2. FULVESTRANT [Concomitant]
     Active Substance: FULVESTRANT
     Dosage: UNK

REACTIONS (38)
  - Leukopenia [Unknown]
  - Pneumonia [Unknown]
  - Loss of consciousness [Unknown]
  - Product dose omission issue [Unknown]
  - Neoplasm progression [Unknown]
  - Nausea [Unknown]
  - Decreased appetite [Unknown]
  - Urine odour abnormal [Unknown]
  - Diarrhoea [Unknown]
  - Headache [Unknown]
  - Constipation [Unknown]
  - Dry mouth [Unknown]
  - Pain [Unknown]
  - Fatigue [Unknown]
  - Insomnia [Unknown]
  - Dyspnoea [Unknown]
  - Oropharyngeal pain [Unknown]
  - Vomiting [Unknown]
  - Arthralgia [Unknown]
  - Myalgia [Unknown]
  - Abdominal pain upper [Unknown]
  - Crying [Unknown]
  - Tremor [Unknown]
  - Gingival pain [Unknown]
  - Dry throat [Unknown]
  - Throat irritation [Unknown]
  - Asthenia [Unknown]
  - Oral pain [Unknown]
  - Thermal burn [Unknown]
  - Weight increased [Unknown]
  - Weight decreased [Unknown]
  - Thirst decreased [Unknown]
  - Oesophagitis [Unknown]
  - Feeling cold [Unknown]
  - Hernia [Unknown]
  - Cough [Unknown]
  - Dyspepsia [Unknown]
  - Dyspnoea [Unknown]

NARRATIVE: CASE EVENT DATE: 20220101
